FAERS Safety Report 20006269 (Version 1)
Quarter: 2021Q4

REPORT INFORMATION
  Report Type: Spontaneous
  Country: US (occurrence: US)
  Receive Date: 20211028
  Receipt Date: 20211028
  Transmission Date: 20220303
  Serious: No
  Sender: FDA-Public Use
  Company Number: None

PATIENT
  Age: 15 Year
  Sex: Male

DRUGS (4)
  1. ETOPOSIDE [Suspect]
     Active Substance: ETOPOSIDE
     Indication: Ependymoma
     Dosage: ?          OTHER FREQUENCY:UNKNOWN;
     Route: 048
  2. ZOLINZA [Concomitant]
     Active Substance: VORINOSTAT
  3. PROZAC [Concomitant]
     Active Substance: FLUOXETINE HYDROCHLORIDE
  4. TENEX [Concomitant]
     Active Substance: GUANFACINE HYDROCHLORIDE

REACTIONS (3)
  - Drug intolerance [None]
  - Drug ineffective [None]
  - Fatigue [None]

NARRATIVE: CASE EVENT DATE: 20210817
